FAERS Safety Report 8581617-X (Version None)
Quarter: 2012Q3

REPORT INFORMATION
  Report Type: 
  Country: None (occurrence: None)
  Receive Date: 20120801
  Receipt Date: 20120801
  Transmission Date: 20120928
  Serious: Yes (Other)
  Sender: FDA-Public Use
  Company Number: None

PATIENT
  Sex: Female

DRUGS (1)
  1. ZOLPIDEM [Suspect]
     Indication: INSOMNIA
     Dosage: 5 MG ONCE A DAY PO  ONE TIME USE
     Route: 048
     Dates: start: 20100726

REACTIONS (4)
  - STUPOR [None]
  - ANXIETY [None]
  - FEELING JITTERY [None]
  - NERVOUSNESS [None]
